FAERS Safety Report 5672790-1 (Version None)
Quarter: 2008Q1

REPORT INFORMATION
  Report Type: 
  Country: None (occurrence: None)
  Receive Date: 20080319
  Receipt Date: 20080108
  Transmission Date: 20080703
  Serious: No
  Sender: FDA-Public Use
  Company Number: US-KINGPHARMUSA00001-K200800023

PATIENT

DRUGS (2)
  1. ALTACE [Suspect]
     Dosage: 5 MG, UNK
     Route: 048
  2. ALTACE [Suspect]
     Dosage: 10 MG
     Route: 048

REACTIONS (3)
  - COUGH [None]
  - DIZZINESS [None]
  - MUSCLE SPASMS [None]
